FAERS Safety Report 25099439 (Version 2)
Quarter: 2025Q4

REPORT INFORMATION
  Report Type: Report from Study
  Country: US (occurrence: US)
  Receive Date: 20250320
  Receipt Date: 20251001
  Transmission Date: 20260118
  Serious: Yes (Hospitalization)
  Sender: SUNOVION
  Company Number: US-SMPA-2025SPA002304AA

PATIENT
  Age: 69 Year
  Sex: Male

DRUGS (1)
  1. ORGOVYX [Suspect]
     Active Substance: RELUGOLIX
     Indication: Prostate cancer
     Dosage: 120 MG, QD
     Route: 048
     Dates: start: 20250208

REACTIONS (4)
  - Knee arthroplasty [Unknown]
  - Abdominal discomfort [Unknown]
  - Hot flush [Unknown]
  - Incorrect dose administered [Recovered/Resolved]
